FAERS Safety Report 24291561 (Version 1)
Quarter: 2024Q3

REPORT INFORMATION
  Report Type: Spontaneous
  Country: US (occurrence: None)
  Receive Date: 20240906
  Receipt Date: 20240906
  Transmission Date: 20241016
  Serious: No
  Sender: DOMPE FARMACEUTICI
  Company Number: US-FARMAPROD-202308-202309-2777

PATIENT
  Sex: Male

DRUGS (23)
  1. OXERVATE [Suspect]
     Active Substance: CENEGERMIN-BKBJ
     Indication: Hypoaesthesia eye
     Route: 047
     Dates: start: 20221102, end: 20221226
  2. OXERVATE [Suspect]
     Active Substance: CENEGERMIN-BKBJ
     Route: 047
     Dates: start: 20230824
  3. EX-LAX REGULAR STRENGTH STIMULANT LAXATIVE [Concomitant]
     Active Substance: SENNOSIDES
  4. GAS-X [Concomitant]
     Active Substance: DIMETHICONE
  5. GLUCOSAMINE-CHONDROITIN-UC II [Concomitant]
  6. QUERCETIN [Concomitant]
     Active Substance: QUERCETIN
  7. TEA LEAF [Concomitant]
     Active Substance: TEA LEAF
  8. DIETARY SUPPLEMENT\RESVERATROL [Concomitant]
     Active Substance: DIETARY SUPPLEMENT\RESVERATROL
  9. ALPHA LIPOIC ACID [Concomitant]
     Active Substance: .ALPHA.-LIPOIC ACID
  10. HERBALS\VITIS VINIFERA SEED [Concomitant]
     Active Substance: HERBALS\VITIS VINIFERA SEED
  11. HYALURONIC ACID SODIUM SALT [Concomitant]
  12. CEQUA [Concomitant]
     Active Substance: CYCLOSPORINE
  13. XIIDRA [Concomitant]
     Active Substance: LIFITEGRAST
  14. EYSUVIS [Concomitant]
     Active Substance: LOTEPREDNOL ETABONATE
  15. FISH OIL [Concomitant]
     Active Substance: FISH OIL
  16. TYLENOL [Concomitant]
     Active Substance: ACETAMINOPHEN
  17. UNSPECIFIED INGREDIENT [Concomitant]
     Active Substance: UNSPECIFIED INGREDIENT
  18. LUTEIN [Concomitant]
     Active Substance: LUTEIN
  19. HERBALS\TURMERIC [Concomitant]
     Active Substance: HERBALS\TURMERIC
  20. VITAMINS [Concomitant]
     Active Substance: VITAMINS
  21. NAC [Concomitant]
  22. ZEAXANTHIN [Concomitant]
     Active Substance: ZEAXANTHIN
  23. ASTAXANTHIN [Concomitant]
     Active Substance: ASTAXANTHIN

REACTIONS (1)
  - Product storage error [Unknown]
